FAERS Safety Report 8047080-2 (Version None)
Quarter: 2012Q1

REPORT INFORMATION
  Report Type: 
  Country: None (occurrence: None)
  Receive Date: 20120116
  Receipt Date: 20120105
  Transmission Date: 20120608
  Serious: Yes (Hospitalization)
  Sender: FDA-Public Use
  Company Number: IE-ELI_LILLY_AND_COMPANY-IE201111005945

PATIENT
  Sex: Male
  Weight: 74.2 kg

DRUGS (12)
  1. RISPERIDONE [Concomitant]
     Dosage: 0.5 MG, EACH EVENING
     Route: 048
  2. RAMIPRIL [Concomitant]
     Dosage: 1.5 MG, QD
     Route: 048
  3. CYMBALTA [Suspect]
     Dosage: UNK, UNKNOWN
     Route: 048
  4. DONEPEZIL HCL [Concomitant]
     Dosage: 10 MG, EACH EVENING
     Route: 048
  5. ATORVASTATIN [Concomitant]
     Dosage: 40 MG, QD
     Route: 048
  6. FUROSEMIDE [Concomitant]
     Dosage: 40 MG, QD
     Route: 048
  7. LACTULOSE [Concomitant]
     Dosage: 15 UNK, UNK
     Route: 048
  8. LEVOTHYROXINE SODIUM [Concomitant]
     Dosage: 50 UG, QD
     Route: 048
  9. FORTISIP [Concomitant]
     Dosage: UNK, BID
     Route: 048
  10. SOMA [Concomitant]
     Dosage: UNK, EACH EVENING
  11. ASPIRIN [Concomitant]
     Dosage: 75 MG, QD
     Route: 048
  12. CLOPIDOGREL [Concomitant]
     Dosage: 75 MG, QD
     Route: 048

REACTIONS (2)
  - DYSPHAGIA [None]
  - WRONG TECHNIQUE IN DRUG USAGE PROCESS [None]
